FAERS Safety Report 20212695 (Version 1)
Quarter: 2021Q4

REPORT INFORMATION
  Report Type: Spontaneous
  Country: LB (occurrence: LB)
  Receive Date: 20211221
  Receipt Date: 20211221
  Transmission Date: 20220303
  Serious: Yes (Other)
  Sender: FDA-Public Use
  Company Number: LB-SA-SAC20211215000921

PATIENT
  Sex: Female

DRUGS (1)
  1. LOVENOX [Suspect]
     Active Substance: ENOXAPARIN SODIUM
     Indication: Thrombosis
     Dosage: UNK

REACTIONS (3)
  - Abortion [Unknown]
  - Maternal exposure during pregnancy [Unknown]
  - Product availability issue [Unknown]

NARRATIVE: CASE EVENT DATE: 20210101
